FAERS Safety Report 4790995-9 (Version None)
Quarter: 2005Q4

REPORT INFORMATION
  Report Type: 
  Country: None (occurrence: None)
  Receive Date: 20051007
  Receipt Date: 20040222
  Transmission Date: 20060501
  Serious: Yes (Other)
  Sender: FDA-Public Use
  Company Number: 2004UW06530

PATIENT
  Age: 43 Year
  Sex: Female

DRUGS (1)
  1. ZOLADEX [Suspect]
     Indication: LEIOMYOMA
     Route: 058
     Dates: start: 20031207

REACTIONS (2)
  - DRUG EXPOSURE DURING PREGNANCY [None]
  - PREMATURE BABY [None]
